FAERS Safety Report 9712969 (Version 1)
Quarter: 2013Q4

REPORT INFORMATION
  Report Type: Spontaneous
  Country: US (occurrence: US)
  Receive Date: 20131126
  Receipt Date: 20131126
  Transmission Date: 20140711
  Serious: No
  Sender: FDA-Public Use
  Company Number: US-BRISTOL-MYERS SQUIBB COMPANY-18949768

PATIENT
  Age: 51 Year
  Sex: Female
  Weight: 75.73 kg

DRUGS (4)
  1. BYDUREON [Suspect]
     Indication: TYPE 2 DIABETES MELLITUS
     Dosage: 2ND INJECTION ON 27MAY13
     Route: 058
     Dates: start: 20130520
  2. METFORMIN [Concomitant]
  3. LANTUS [Concomitant]
  4. INSULIN [Concomitant]

REACTIONS (4)
  - Injection site erythema [Recovering/Resolving]
  - Injection site pruritus [Recovering/Resolving]
  - Injection site swelling [Recovering/Resolving]
  - Injection site pain [Recovering/Resolving]
